FAERS Safety Report 12263361 (Version 2)
Quarter: 2016Q3

REPORT INFORMATION
  Report Type: Spontaneous
  Country: JP (occurrence: JP)
  Receive Date: 20160413
  Receipt Date: 20160923
  Transmission Date: 20161109
  Serious: Yes (Life-Threatening, Hospitalization, Other)
  Sender: FDA-Public Use
  Company Number: JP-PFIZER INC-2016040310

PATIENT
  Age: 70 Year
  Sex: Male
  Weight: 55 kg

DRUGS (6)
  1. INLYTA [Suspect]
     Active Substance: AXITINIB
     Dosage: 2 MG, 2X/DAY
     Route: 048
     Dates: start: 20151026, end: 20151102
  2. INLYTA [Suspect]
     Active Substance: AXITINIB
     Dosage: 2 MG, 2X/DAY
     Route: 048
     Dates: start: 20151130, end: 20160117
  3. INLYTA [Suspect]
     Active Substance: AXITINIB
     Dosage: 3 MG, 2X/DAY
     Route: 048
     Dates: start: 20150925, end: 20151021
  4. INLYTA [Suspect]
     Active Substance: AXITINIB
     Dosage: 2.5 MG, 2X/DAY
     Route: 048
     Dates: start: 20151022, end: 20151025
  5. INLYTA [Suspect]
     Active Substance: AXITINIB
     Indication: RENAL CELL CARCINOMA
     Dosage: 3 MG, 2X/DAY
     Route: 048
     Dates: start: 20150824, end: 20150907
  6. INLYTA [Suspect]
     Active Substance: AXITINIB
     Dosage: 1 MG, 2X/DAY
     Route: 048
     Dates: start: 20151103, end: 20151129

REACTIONS (5)
  - Blood lactate dehydrogenase increased [Unknown]
  - Femur fracture [Recovered/Resolved]
  - Cardiac failure [Recovering/Resolving]
  - White blood cell count decreased [Unknown]
  - Platelet count decreased [Unknown]

NARRATIVE: CASE EVENT DATE: 20150906
